FAERS Safety Report 10579021 (Version 2)
Quarter: 2014Q4

REPORT INFORMATION
  Report Type: Report from Study
  Country: CN (occurrence: CN)
  Receive Date: 20141112
  Receipt Date: 20141112
  Transmission Date: 20150529
  Serious: Yes (Other)
  Sender: FDA-Public Use
  Company Number: CN-BAYER-2014-135964

PATIENT
  Age: 79 Year
  Sex: Male

DRUGS (2)
  1. NEXAVAR [Suspect]
     Active Substance: SORAFENIB
     Indication: HEPATOCELLULAR CARCINOMA
     Dosage: 400 MG, BID
     Dates: start: 20140906, end: 20141027
  2. NEXAVAR [Suspect]
     Active Substance: SORAFENIB
     Indication: HEPATOCELLULAR CARCINOMA
     Dosage: 400 MG, QD
     Dates: start: 20141004

REACTIONS (5)
  - Diarrhoea [Recovered/Resolved]
  - Decreased appetite [None]
  - Muscle disorder [Recovering/Resolving]
  - Skin disorder [Recovering/Resolving]
  - Arthralgia [None]

NARRATIVE: CASE EVENT DATE: 201409
